FAERS Safety Report 9099242 (Version 1)
Quarter: 2013Q1

REPORT INFORMATION
  Report Type: Spontaneous
  Country: FR (occurrence: FR)
  Receive Date: 20130213
  Receipt Date: 20130213
  Transmission Date: 20140127
  Serious: Yes (Other)
  Sender: FDA-Public Use
  Company Number: FR-ASTRAZENECA-2013SE08619

PATIENT
  Age: 46 Year
  Sex: Male

DRUGS (4)
  1. MOPRAL [Suspect]
     Route: 048
     Dates: start: 201206
  2. INTELENCE [Interacting]
     Indication: HIV INFECTION
     Route: 048
  3. ISENTRESS [Concomitant]
     Indication: HIV INFECTION
  4. CELSENTRI [Concomitant]
     Indication: HIV INFECTION

REACTIONS (4)
  - Potentiating drug interaction [Not Recovered/Not Resolved]
  - Antiviral drug level above therapeutic [Not Recovered/Not Resolved]
  - Neuropathy peripheral [Not Recovered/Not Resolved]
  - Diarrhoea [Not Recovered/Not Resolved]
